FAERS Safety Report 7100947-1 (Version None)
Quarter: 2010Q4

REPORT INFORMATION
  Report Type: 
  Country: None (occurrence: None)
  Receive Date: 20101113
  Receipt Date: 20100414
  Transmission Date: 20110411
  Serious: No
  Sender: FDA-Public Use
  Company Number: US-ALLERGAN-1004047US

PATIENT
  Age: 27 Year
  Sex: Female

DRUGS (3)
  1. BOTOXA? [Suspect]
     Indication: PAIN
     Dosage: 285 UNITS, SINGLE
     Route: 030
     Dates: start: 20100304, end: 20100304
  2. BOTOXA? [Suspect]
     Indication: DYSTONIA
  3. BOTOXA? [Suspect]

REACTIONS (1)
  - DRUG INEFFECTIVE [None]
